FAERS Safety Report 10918525 (Version 1)
Quarter: 2015Q1

REPORT INFORMATION
  Report Type: Spontaneous
  Country: US (occurrence: US)
  Receive Date: 20150316
  Receipt Date: 20150316
  Transmission Date: 20150721
  Serious: No
  Sender: FDA-Public Use
  Company Number: US-GALDERMA-US14004664

PATIENT
  Age: 45 Year
  Sex: Male

DRUGS (1)
  1. TRI-LUMA [Suspect]
     Active Substance: FLUOCINOLONE ACETONIDE\HYDROQUINONE\TRETINOIN
     Indication: GENERALISED ERYTHEMA
     Route: 061
     Dates: start: 201411, end: 201411

REACTIONS (4)
  - Rash [Recovered/Resolved]
  - Skin irritation [Recovered/Resolved]
  - Product use issue [Recovered/Resolved]
  - Dermatitis [Recovered/Resolved]

NARRATIVE: CASE EVENT DATE: 201411
